FAERS Safety Report 4698264-2 (Version None)
Quarter: 2005Q2

REPORT INFORMATION
  Report Type: 
  Country: None (occurrence: None)
  Receive Date: 20050623
  Receipt Date: 20011025
  Transmission Date: 20051028
  Serious: Yes (Hospitalization, Other)
  Sender: FDA-Public Use
  Company Number: US-MERCK-01104500

PATIENT
  Age: 55 Year
  Sex: Male
  Weight: 70 kg

DRUGS (1)
  1. VIOXX [Suspect]
     Indication: LOCAL SWELLING
     Route: 048
     Dates: start: 20010115, end: 20010217

REACTIONS (41)
  - ABDOMINAL PAIN UPPER [None]
  - ACROCHORDON [None]
  - AGGRESSION [None]
  - ALCOHOLIC SEIZURE [None]
  - ANAEMIA [None]
  - ANION GAP INCREASED [None]
  - ASCITES [None]
  - BARRETT'S OESOPHAGUS [None]
  - BLOOD PRESSURE FLUCTUATION [None]
  - CARDIOVASCULAR DISORDER [None]
  - CEREBRAL ATROPHY [None]
  - CHANGE OF BOWEL HABIT [None]
  - CHOLECYSTITIS [None]
  - DRUG HYPERSENSITIVITY [None]
  - DUODENITIS [None]
  - EMPHYSEMA [None]
  - ENCEPHALOPATHY [None]
  - GASTRITIS [None]
  - GRAND MAL CONVULSION [None]
  - HAEMATEMESIS [None]
  - HAEMATOMA [None]
  - HEADACHE [None]
  - HEPATIC CYST [None]
  - HEPATIC STEATOSIS [None]
  - HIATUS HERNIA [None]
  - HORDEOLUM [None]
  - HYDROCHOLECYSTIS [None]
  - HYPOKALAEMIA [None]
  - INFLUENZA [None]
  - INTESTINAL DILATATION [None]
  - LACERATION [None]
  - LIMB INJURY [None]
  - MEAN CELL VOLUME INCREASED [None]
  - OEDEMA [None]
  - POSTICTAL STATE [None]
  - PRURITUS [None]
  - RENAL FAILURE [None]
  - TACHYCARDIA [None]
  - TENOSYNOVITIS STENOSANS [None]
  - VISION BLURRED [None]
  - WEIGHT DECREASED [None]
